FAERS Safety Report 4479457-6 (Version None)
Quarter: 2004Q4

REPORT INFORMATION
  Report Type: 
  Country: None (occurrence: None)
  Receive Date: 20041015
  Receipt Date: 20041005
  Transmission Date: 20050328
  Serious: Yes (Death)
  Sender: FDA-Public Use
  Company Number: 2004237726US

PATIENT
  Age: 19 Year
  Sex: Male

DRUGS (4)
  1. XANAX [Suspect]
  2. FENTANYL [Suspect]
     Indication: INTENTIONAL MISUSE
     Dosage: ORAL
     Route: 048
     Dates: end: 20040703
  3. PERCOCET [Suspect]
  4. METHYLENEDIOXYAMPHETAMINE (METHYLENEDIOXYAMPHETAMINE) [Suspect]

REACTIONS (3)
  - INTENTIONAL MISUSE [None]
  - MULTIPLE DRUG OVERDOSE INTENTIONAL [None]
  - SELF-MEDICATION [None]
